FAERS Safety Report 24289077 (Version 1)
Quarter: 2024Q3

REPORT INFORMATION
  Report Type: Spontaneous
  Country: US (occurrence: US)
  Receive Date: 20240906
  Receipt Date: 20240906
  Transmission Date: 20241016
  Serious: No
  Sender: KINDEVA DRUG DELIVERY
  Company Number: US-Kindeva Drug Delivery L.P.-2161297

PATIENT
  Age: 76 Year
  Sex: Male

DRUGS (2)
  1. ALBUTEROL SULFATE [Suspect]
     Active Substance: ALBUTEROL SULFATE
     Indication: Asthma
     Route: 055
     Dates: start: 20010911
  2. ALBUTEROL [Suspect]
     Active Substance: ALBUTEROL

REACTIONS (2)
  - Asthma [Unknown]
  - Product complaint [Unknown]

NARRATIVE: CASE EVENT DATE: 20240816
